FAERS Safety Report 6685883-7 (Version None)
Quarter: 2010Q2

REPORT INFORMATION
  Report Type: 
  Country: None (occurrence: None)
  Receive Date: 20100419
  Receipt Date: 20100408
  Transmission Date: 20101027
  Serious: Yes (Hospitalization)
  Sender: FDA-Public Use
  Company Number: NO-JNJFOC-20100402756

PATIENT
  Age: 12 Year
  Sex: Female

DRUGS (5)
  1. REMICADE [Suspect]
     Indication: COLITIS ULCERATIVE
     Route: 042
  2. REMICADE [Suspect]
     Dosage: RECEIVED 3 INDUCTION DOSES AND 1 DOSE AFTER 8 WEEKS
     Route: 042
  3. SOLU-MEDROL [Concomitant]
     Indication: PREMEDICATION
  4. PHENAMIN [Concomitant]
     Indication: PREMEDICATION
  5. IMUREL [Concomitant]
     Indication: COLITIS ULCERATIVE

REACTIONS (5)
  - ARTHRALGIA [None]
  - MYALGIA [None]
  - PYREXIA [None]
  - URTICARIA [None]
  - VOMITING [None]
